FAERS Safety Report 4383774-8 (Version None)
Quarter: 2004Q2

REPORT INFORMATION
  Report Type: 
  Country: None (occurrence: None)
  Receive Date: 20040608
  Receipt Date: 20030628
  Transmission Date: 20050107
  Serious: Yes (Other)
  Sender: FDA-Public Use
  Company Number: 200312228BCC

PATIENT
  Age: 35 Year
  Sex: Male
  Weight: 92.9874 kg

DRUGS (1)
  1. ALEVE [Suspect]
     Dosage: 220 MG, TOTAL DAILY, ORAL
     Route: 048
     Dates: start: 20030627

REACTIONS (2)
  - DYSPNOEA [None]
  - OROPHARYNGEAL SWELLING [None]
